FAERS Safety Report 4693031-8 (Version None)
Quarter: 2005Q2

REPORT INFORMATION
  Report Type: 
  Country: None (occurrence: None)
  Receive Date: 20050617
  Receipt Date: 20050610
  Transmission Date: 20051028
  Serious: Yes (Hospitalization)
  Sender: FDA-Public Use
  Company Number: PHBS2005FR08276

PATIENT
  Age: 72 Year
  Sex: Female

DRUGS (8)
  1. LOPRESSOR [Suspect]
     Indication: ESSENTIAL HYPERTENSION
     Route: 048
     Dates: start: 19910615, end: 20041215
  2. CORVASAL [Concomitant]
  3. TEMESTA [Concomitant]
  4. L-THYROXINE [Concomitant]
  5. VASTAREL [Concomitant]
  6. KARDEGIC [Concomitant]
  7. LASILIX [Concomitant]
     Dates: end: 20040101
  8. APROVEL [Concomitant]
     Dates: end: 20040101

REACTIONS (5)
  - BLOOD IMMUNOGLOBULIN E INCREASED [None]
  - ECZEMA [None]
  - EOSINOPHIL COUNT INCREASED [None]
  - LYMPHOPENIA [None]
  - TOXIC SKIN ERUPTION [None]
